FAERS Safety Report 11243475 (Version 1)
Quarter: 2015Q3

REPORT INFORMATION
  Report Type: Spontaneous
  Country: US (occurrence: None)
  Receive Date: 20150702
  Receipt Date: 20150702
  Transmission Date: 20151125
  Serious: Yes (Disabling)
  Sender: FDA-Public Use
  Company Number: None

PATIENT
  Age: 51 Year
  Sex: Male
  Weight: 90.72 kg

DRUGS (1)
  1. LEVOFLOXACIN 500 MG TO 750 MG [Suspect]
     Active Substance: LEVOFLOXACIN
     Indication: INFECTION
     Dosage: 1 PILL TWICE DAILY
     Route: 048
     Dates: start: 20150101, end: 20150430

REACTIONS (10)
  - Confusional state [None]
  - Asthenia [None]
  - Gait disturbance [None]
  - Pain [None]
  - Impaired work ability [None]
  - Arthralgia [None]
  - Motor dysfunction [None]
  - Mobility decreased [None]
  - Myalgia [None]
  - Visual impairment [None]

NARRATIVE: CASE EVENT DATE: 20141223
